FAERS Safety Report 24419738 (Version 1)
Quarter: 2024Q4

REPORT INFORMATION
  Report Type: Spontaneous
  Country: US (occurrence: US)
  Receive Date: 20241010
  Receipt Date: 20241010
  Transmission Date: 20250115
  Serious: Yes (Hospitalization, Other)
  Sender: APOTEX
  Company Number: US-APOTEX-2024AP011736

PATIENT
  Age: 78 Year
  Sex: Male

DRUGS (2)
  1. APIXABAN [Suspect]
     Active Substance: APIXABAN
     Indication: Atrial fibrillation
     Dosage: 5 MILLIGRAM, BID
     Route: 065
  2. APIXABAN [Suspect]
     Active Substance: APIXABAN
     Indication: Cerebral infarction

REACTIONS (5)
  - Cardiac tamponade [Unknown]
  - Pericardial effusion [Recovered/Resolved]
  - Multiple organ dysfunction syndrome [Unknown]
  - Shock [Unknown]
  - Pericardial haemorrhage [Recovered/Resolved]
